FAERS Safety Report 4534090-2 (Version None)
Quarter: 2004Q4

REPORT INFORMATION
  Report Type: 
  Country: None (occurrence: None)
  Receive Date: 20041222
  Receipt Date: 20041210
  Transmission Date: 20050328
  Serious: Yes (Life-Threatening, Hospitalization)
  Sender: FDA-Public Use
  Company Number: DE-JNJFOC-20041106278

PATIENT
  Sex: Female
  Weight: 65 kg

DRUGS (4)
  1. INFLIXIMAB [Suspect]
     Route: 042
  2. INFLIXIMAB [Suspect]
     Indication: MYELODYSPLASTIC SYNDROME
     Route: 042
  3. TENORMIN 50 [Concomitant]
  4. STANGYL 25 [Concomitant]

REACTIONS (15)
  - BACTERIA SPUTUM IDENTIFIED [None]
  - BRONCHOALVEOLAR LAVAGE ABNORMAL [None]
  - DIALYSIS [None]
  - ENTEROCOCCAL INFECTION [None]
  - HERPES SIMPLEX [None]
  - HERPES ZOSTER [None]
  - LUNG INFECTION PSEUDOMONAL [None]
  - PARVOVIRUS INFECTION [None]
  - PLEURAL EFFUSION [None]
  - PSEUDOMONAS INFECTION [None]
  - RENAL FAILURE [None]
  - RESPIRATORY MONILIASIS [None]
  - SEPSIS [None]
  - STAPHYLOCOCCAL INFECTION [None]
  - STENOTROPHOMONAS INFECTION [None]
